APPROVED DRUG PRODUCT: SULAR
Active Ingredient: NISOLDIPINE
Strength: 30MG **Federal Register determination that product was not discontinued or withdrawn for safety or effectiveness reasons**
Dosage Form/Route: TABLET, EXTENDED RELEASE;ORAL
Application: N020356 | Product #003
Applicant: COVIS PHARMA GMBH
Approved: Feb 2, 1995 | RLD: Yes | RS: No | Type: DISCN